FAERS Safety Report 6359490-X (Version None)
Quarter: 2009Q3

REPORT INFORMATION
  Report Type: 
  Country: None (occurrence: None)
  Receive Date: 20090817
  Receipt Date: 20081114
  Transmission Date: 20100115
  Serious: No
  Sender: FDA-Public Use
  Company Number: 20085352

PATIENT
  Sex: Male

DRUGS (1)
  1. LIORESAL [Suspect]
     Indication: MUSCLE SPASTICITY
     Dosage: MCG, DAILY,  INTRATHECAL
     Route: 037

REACTIONS (1)
  - DRUG INEFFECTIVE [None]
